FAERS Safety Report 12092637 (Version 1)
Quarter: 2016Q1

REPORT INFORMATION
  Report Type: Report from Study
  Country: FR (occurrence: FR)
  Receive Date: 20160219
  Receipt Date: 20160219
  Transmission Date: 20160526
  Serious: Yes (Death, Hospitalization, Other)
  Sender: FDA-Public Use
  Company Number: PHHY2016FR008437

PATIENT
  Age: 85 Year
  Sex: Female

DRUGS (1)
  1. AFINITOR [Suspect]
     Active Substance: EVEROLIMUS
     Indication: BREAST CANCER
     Dosage: 5 MG, UNK
     Route: 048
     Dates: start: 20150908, end: 20151027

REACTIONS (18)
  - Loss of consciousness [Fatal]
  - Atelectasis [Unknown]
  - Tachycardia [Unknown]
  - Pleural effusion [Unknown]
  - Malaise [Unknown]
  - Wheezing [Unknown]
  - Crepitations [Unknown]
  - Vital functions abnormal [Unknown]
  - C-reactive protein increased [Unknown]
  - Cardiac disorder [Fatal]
  - General physical health deterioration [Unknown]
  - Dyspnoea [Unknown]
  - Oedema peripheral [Unknown]
  - Fatigue [Unknown]
  - Haemoglobin decreased [Unknown]
  - Acute respiratory failure [Fatal]
  - Cardio-respiratory arrest [Fatal]
  - Haemodynamic instability [Unknown]

NARRATIVE: CASE EVENT DATE: 20151027
